FAERS Safety Report 14780742 (Version 2)
Quarter: 2025Q4

REPORT INFORMATION
  Report Type: Spontaneous
  Country: EU (occurrence: EU)
  Receive Date: 20180419
  Receipt Date: 20251229
  Transmission Date: 20260119
  Serious: Yes (Congenital Anomaly, Other)
  Sender: TEVA
  Company Number: None

PATIENT
  Age: 0 Year
  Sex: Female
  Weight: 2.9 kg

DRUGS (4)
  1. QUETIAPINE [Suspect]
     Active Substance: QUETIAPINE
     Indication: Insomnia
     Route: 064
     Dates: start: 20171027
  2. SERTRALINE HYDROCHLORIDE [Suspect]
     Active Substance: SERTRALINE HYDROCHLORIDE
     Indication: Depression
     Route: 064
     Dates: start: 20171017
  3. OXAZEPAM [Suspect]
     Active Substance: OXAZEPAM
     Indication: Sedative therapy
     Dosage: OXAZEPAM ALTERNOVA, 0.5-1 TABLET DAILY
     Route: 064
     Dates: start: 20170908
  4. ZOPICLONE [Suspect]
     Active Substance: ZOPICLONE
     Indication: Depression
     Route: 064
     Dates: start: 20171017, end: 20171029

REACTIONS (7)
  - Dysmorphism [Not Recovered/Not Resolved]
  - Congenital eyelid malformation [Not Recovered/Not Resolved]
  - Foetal exposure during pregnancy [Recovered/Resolved]
  - Low set ears [Not Recovered/Not Resolved]
  - Retrognathia [Not Recovered/Not Resolved]
  - Congenital foot malformation [Not Recovered/Not Resolved]
  - Congenital hand malformation [Not Recovered/Not Resolved]

NARRATIVE: CASE EVENT DATE: 20170101
